FAERS Safety Report 5755250-9 (Version None)
Quarter: 2008Q2

REPORT INFORMATION
  Report Type: 
  Country: None (occurrence: None)
  Receive Date: 20080529
  Receipt Date: 20080529
  Transmission Date: 20081010
  Serious: Yes (Other)
  Sender: FDA-Public Use
  Company Number: None

PATIENT
  Age: 78 Year
  Sex: Male
  Weight: 57.27 kg

DRUGS (2)
  1. MOXIFLOXACIN HCL [Suspect]
     Indication: PNEUMONIA
     Dosage: 400MG IV DAILY X 5 DAYS
     Dates: start: 20080117, end: 20080121
  2. MOXIFLOXACIN HCL [Suspect]
     Dosage: 400 MG PO DAILY X 5 DAYS
     Route: 048
     Dates: start: 20080122, end: 20080127

REACTIONS (1)
  - THROMBOCYTOPENIA [None]
